FAERS Safety Report 18888899 (Version 1)
Quarter: 2021Q1

REPORT INFORMATION
  Report Type: Not Available
  Country: US (occurrence: US)
  Receive Date: 20210212
  Receipt Date: 20210212
  Transmission Date: 20210420
  Serious: No
  Sender: FDA-Public Use
  Company Number: US-NEUROCRINE BIOSCIENCES INC.-2021NBI00531

PATIENT
  Age: 63 Year
  Sex: Male

DRUGS (24)
  1. RASAGILINE. [Concomitant]
     Active Substance: RASAGILINE
  2. APPLE CIDER VINEGAR [Concomitant]
     Active Substance: APPLE CIDER VINEGAR
  3. ALLEGRA [Concomitant]
     Active Substance: FEXOFENADINE HYDROCHLORIDE
  4. CYANOCOBALAMIN. [Concomitant]
     Active Substance: CYANOCOBALAMIN
  5. NEUPRO [Concomitant]
     Active Substance: ROTIGOTINE
  6. QVAR REDIHALER [Concomitant]
     Active Substance: BECLOMETHASONE DIPROPIONATE
  7. DOMPERIDONE [Concomitant]
     Active Substance: DOMPERIDONE
  8. MELOXICAM. [Concomitant]
     Active Substance: MELOXICAM
  9. TRAZODONE [Concomitant]
     Active Substance: TRAZODONE HYDROCHLORIDE
  10. ONGENTYS [Suspect]
     Active Substance: OPICAPONE
     Indication: PARKINSON^S DISEASE
     Route: 048
     Dates: start: 202011
  11. BACLOFEN. [Concomitant]
     Active Substance: BACLOFEN
  12. CARBIDOPA/LEVODOPA [Concomitant]
     Active Substance: CARBIDOPA\LEVODOPA
  13. BETAMETHASONE. [Concomitant]
     Active Substance: BETAMETHASONE
  14. ENTACAPONE. [Concomitant]
     Active Substance: ENTACAPONE
  15. NAC?600 [Concomitant]
  16. OMEGA 3 [Concomitant]
     Active Substance: OMEGA-3 FATTY ACIDS
  17. ESCITALOPRAM [Concomitant]
     Active Substance: ESCITALOPRAM OXALATE
  18. VIAGRA [Concomitant]
     Active Substance: SILDENAFIL CITRATE
  19. VITAMIN C [Concomitant]
     Active Substance: ASCORBIC ACID
  20. CENTRUM [Concomitant]
     Active Substance: VITAMINS
  21. DOCUSATE [Concomitant]
     Active Substance: DOCUSATE
  22. MELATONIN [Concomitant]
     Active Substance: MELATONIN
  23. MINOXIDIL FOR MEN [Concomitant]
     Active Substance: MINOXIDIL
  24. MULTIPLE VITAMIN [Concomitant]
     Active Substance: VITAMINS

REACTIONS (1)
  - Constipation [Unknown]
